FAERS Safety Report 8184561-5 (Version None)
Quarter: 2012Q1

REPORT INFORMATION
  Report Type: 
  Country: None (occurrence: None)
  Receive Date: 20120305
  Receipt Date: 20120302
  Transmission Date: 20120608
  Serious: Yes (Hospitalization, Other)
  Sender: FDA-Public Use
  Company Number: US-MERCK-1109USA00516

PATIENT
  Age: 63 Year
  Sex: Female
  Weight: 79 kg

DRUGS (10)
  1. LEVOXYL [Concomitant]
     Indication: HYPOTHYROIDISM
     Route: 065
  2. FOSAMAX [Suspect]
     Indication: OSTEOPENIA
     Route: 048
     Dates: start: 19980401, end: 20050301
  3. FOSAMAX [Suspect]
     Route: 048
     Dates: start: 20090701, end: 20100215
  4. MULTI-VITAMINS [Concomitant]
     Route: 065
  5. FOSAMAX [Suspect]
     Route: 048
     Dates: start: 20050601, end: 20061101
  6. ASCORBIC ACID [Concomitant]
     Route: 065
  7. ZOCOR [Concomitant]
     Indication: HYPERLIPIDAEMIA
     Route: 048
  8. FOSAMAX [Suspect]
     Route: 048
     Dates: start: 20090301, end: 20100215
  9. FOSAMAX PLUS D [Suspect]
     Indication: OSTEOPENIA
     Route: 048
     Dates: start: 20070501, end: 20081201
  10. CALCIUM (UNSPECIFIED) AND VITAMIN D (UNSPECIFIED) [Concomitant]
     Route: 065

REACTIONS (23)
  - ASTHMA [None]
  - DIVERTICULUM INTESTINAL [None]
  - OSTEOPOROSIS [None]
  - TRANSAMINASES INCREASED [None]
  - OSTEOARTHRITIS [None]
  - ARTHROPATHY [None]
  - HAEMORRHOIDS [None]
  - BLOOD PRESSURE INCREASED [None]
  - FALL [None]
  - FEMUR FRACTURE [None]
  - GASTROOESOPHAGEAL REFLUX DISEASE [None]
  - CHRONIC OBSTRUCTIVE PULMONARY DISEASE [None]
  - VULVAL LEUKOPLAKIA [None]
  - UPPER RESPIRATORY TRACT INFECTION [None]
  - TOOTH EXTRACTION [None]
  - ACUTE STRESS DISORDER [None]
  - WRIST FRACTURE [None]
  - LIGAMENT SPRAIN [None]
  - BURSITIS [None]
  - VULVAR EROSION [None]
  - EMPHYSEMA [None]
  - HAEMORRHAGIC ANAEMIA [None]
  - HEPATIC STEATOSIS [None]
